FAERS Safety Report 5833104-7 (Version None)
Quarter: 2008Q3

REPORT INFORMATION
  Report Type: 
  Country: None (occurrence: None)
  Receive Date: 20080731
  Receipt Date: 20080716
  Transmission Date: 20090109
  Serious: Yes (Hospitalization, Other)
  Sender: FDA-Public Use
  Company Number: 2008MB000081

PATIENT
  Age: 62 Year
  Sex: Male
  Weight: 106.59 kg

DRUGS (13)
  1. CEPHALEXIN [Suspect]
     Indication: DRUG USE FOR UNKNOWN INDICATION
  2. BENZOCAINE (BENZOCAINE) [Suspect]
     Indication: ANAESTHETIC PREMEDICATION
     Dosage: X1; TOP
     Route: 061
  3. LIDOCAINE [Suspect]
     Indication: ANAESTHETIC PREMEDICATION
     Dosage: 100 ML;X1;PO, 4 ML; X1; TOP, 10 ML; X1; TOP
     Route: 061
  4. MIDAZOLAM HCL [Suspect]
     Indication: ANAESTHETIC PREMEDICATION
     Dosage: 8 MG
  5. FENTANYL-100 [Suspect]
     Indication: ANAESTHETIC PREMEDICATION
     Dosage: 50 UG
  6. AMITRIPTYLINE HCL [Concomitant]
  7. AMLODIPINE [Concomitant]
  8. GABAPENTIN [Concomitant]
  9. OXYCODONE HCL [Concomitant]
  10. PRAVASTATIN [Concomitant]
  11. UNSPECIFIED STEROIDS [Concomitant]
  12. ENOXAPARIN SODIUM [Concomitant]
  13. PANTOPRAZOLE [Concomitant]

REACTIONS (4)
  - CYANOSIS CENTRAL [None]
  - DISCOMFORT [None]
  - METHAEMOGLOBINAEMIA [None]
  - OXYGEN SATURATION DECREASED [None]
